FAERS Safety Report 24970156 (Version 1)
Quarter: 2025Q1

REPORT INFORMATION
  Report Type: Spontaneous
  Country: US (occurrence: None)
  Receive Date: 20250213
  Receipt Date: 20250213
  Transmission Date: 20250409
  Serious: Yes (Life-Threatening, Hospitalization)
  Sender: FDA-CTU
  Company Number: None

PATIENT
  Age: 55 Year
  Sex: Male
  Weight: 100.7 kg

DRUGS (1)
  1. TECARTUS [Suspect]
     Active Substance: BREXUCABTAGENE AUTOLEUCEL
     Indication: Mantle cell lymphoma
     Dates: start: 20250114

REACTIONS (6)
  - Pyrexia [None]
  - Tachycardia [None]
  - Neutropenia [None]
  - Infusion related reaction [None]
  - Human rhinovirus test positive [None]
  - Enterovirus test positive [None]

NARRATIVE: CASE EVENT DATE: 20250118
